FAERS Safety Report 9544072 (Version 1)
Quarter: 2013Q3

REPORT INFORMATION
  Report Type: Spontaneous
  Country: US (occurrence: US)
  Receive Date: 20130923
  Receipt Date: 20130923
  Transmission Date: 20140515
  Serious: No
  Sender: FDA-Public Use
  Company Number: US-TEVA-433820USA

PATIENT
  Sex: Male
  Weight: 63.56 kg

DRUGS (6)
  1. AZILECT [Suspect]
     Indication: PARKINSON^S DISEASE
     Route: 048
  2. CARBIDOPA W/LEVODOPA [Concomitant]
     Indication: PARKINSON^S DISEASE
     Dosage: 25/100
     Route: 048
  3. LOVASTATIN [Concomitant]
     Dosage: 10 MILLIGRAM DAILY;
     Route: 048
  4. EYE CAPS [Concomitant]
     Indication: VITAMIN SUPPLEMENTATION
  5. BABY ASPIRIN [Concomitant]
     Indication: CARDIAC DISORDER
  6. TEMAZEPAM [Concomitant]
     Indication: INSOMNIA
     Dosage: 15 MILLIGRAM DAILY;
     Route: 048

REACTIONS (2)
  - Headache [Not Recovered/Not Resolved]
  - Insomnia [Not Recovered/Not Resolved]
